FAERS Safety Report 5298114-X (Version None)
Quarter: 2007Q2

REPORT INFORMATION
  Report Type: 
  Country: None (occurrence: None)
  Receive Date: 20070416
  Receipt Date: 20070326
  Transmission Date: 20071010
  Serious: Yes (Death, Hospitalization)
  Sender: FDA-Public Use
  Company Number: BE-ROCHE-489419

PATIENT
  Age: 64 Year
  Sex: Male
  Weight: 58 kg

DRUGS (14)
  1. APRANAX [Suspect]
     Indication: DRUG USE FOR UNKNOWN INDICATION
     Route: 065
     Dates: start: 20070129, end: 20070204
  2. ERLOTINIB [Suspect]
     Indication: NON-SMALL CELL LUNG CANCER
     Route: 048
     Dates: start: 20060329, end: 20070207
  3. MEDROL [Suspect]
     Indication: DRUG USE FOR UNKNOWN INDICATION
     Route: 065
     Dates: end: 20070206
  4. DILTIAZEM [Concomitant]
     Dosage: DRUG NAME REPORTED AS PROGOR
     Dates: end: 20070206
  5. XANTHIUM [Concomitant]
     Dates: end: 20070206
  6. ZANTAC [Concomitant]
     Dates: start: 19890615, end: 20070206
  7. LYSOMUCIL [Concomitant]
     Dates: end: 20070206
  8. TRAZOLAN [Concomitant]
     Dates: end: 20070206
  9. DAFALGAN [Concomitant]
     Dates: end: 20070206
  10. CLEXANE [Concomitant]
     Dates: start: 20070126, end: 20070130
  11. SPIRIVA [Concomitant]
     Dates: end: 20070206
  12. PERFUSALGAN [Concomitant]
     Route: 042
     Dates: start: 20070130, end: 20070206
  13. LITICAN [Concomitant]
     Route: 042
     Dates: start: 20070205, end: 20070205
  14. BUSCOPAN [Concomitant]
     Route: 042
     Dates: start: 20070205, end: 20070205

REACTIONS (2)
  - NECROTISING OESOPHAGITIS [None]
  - PLEURISY [None]
